FAERS Safety Report 22160725 (Version 1)
Quarter: 2023Q1

REPORT INFORMATION
  Report Type: Spontaneous
  Country: US (occurrence: US)
  Receive Date: 20230331
  Receipt Date: 20230331
  Transmission Date: 20230418
  Serious: Yes (Hospitalization, Other)
  Sender: FDA-Public Use
  Company Number: US-ALXN-A202303880

PATIENT
  Sex: Female

DRUGS (2)
  1. SOLIRIS [Suspect]
     Active Substance: ECULIZUMAB
     Indication: Myasthenia gravis
     Dosage: UNK
     Route: 065
  2. IMMUNOGLOBULIN                     /07494701/ [Concomitant]
     Indication: Product used for unknown indication
     Dosage: UNK
     Route: 065

REACTIONS (10)
  - Myasthenia gravis [Unknown]
  - Migraine [Unknown]
  - Swelling face [Unknown]
  - Swollen tongue [Unknown]
  - Pharyngeal swelling [Unknown]
  - Dehydration [Unknown]
  - Nausea [Unknown]
  - Dyspnoea [Unknown]
  - Vomiting [Unknown]
  - Dizziness [Unknown]
